FAERS Safety Report 9940671 (Version 1)
Quarter: 2014Q1

REPORT INFORMATION
  Report Type: Spontaneous
  Country: US (occurrence: US)
  Receive Date: 20140303
  Receipt Date: 20140303
  Transmission Date: 20141002
  Serious: No
  Sender: FDA-Public Use
  Company Number: US-PFIZER INC-2014060262

PATIENT
  Age: 23 Year
  Sex: Male
  Weight: 78.46 kg

DRUGS (1)
  1. NEURONTIN [Suspect]
     Indication: RESTLESS LEGS SYNDROME
     Dosage: 800 MG, 3X/DAY

REACTIONS (1)
  - Device ineffective [Unknown]
